FAERS Safety Report 8328454-9 (Version None)
Quarter: 2012Q2

REPORT INFORMATION
  Report Type: 
  Country: None (occurrence: None)
  Receive Date: 20120502
  Receipt Date: 20120502
  Transmission Date: 20120825
  Serious: No
  Sender: FDA-Public Use
  Company Number: None

PATIENT
  Age: 48 Year
  Sex: Male
  Weight: 73.481 kg

DRUGS (1)
  1. PROPECIA [Suspect]
     Indication: ALOPECIA
     Dosage: |DOSAGETEXT: 1 PILL||STRENGTH: 1 MG||FREQ: DAILY||ROUTE: ORAL|
     Route: 048
     Dates: start: 20050101, end: 20050601

REACTIONS (1)
  - PEYRONIE'S DISEASE [None]
